FAERS Safety Report 17587262 (Version 2)
Quarter: 2024Q1

REPORT INFORMATION
  Report Type: Spontaneous
  Country: KR (occurrence: KR)
  Receive Date: 20200326
  Receipt Date: 20240227
  Transmission Date: 20240410
  Serious: Yes (Hospitalization)
  Sender: FDA-Public Use
  Company Number: KR-BAYER-2020-046905

PATIENT
  Sex: Male

DRUGS (1)
  1. RIVAROXABAN [Suspect]
     Active Substance: RIVAROXABAN
     Indication: Product used for unknown indication
     Route: 048

REACTIONS (5)
  - Bladder neoplasm [Unknown]
  - Haematuria [Recovered/Resolved]
  - Haematuria [Unknown]
  - Urethral discharge [Recovered/Resolved]
  - Urethral discharge [Unknown]

NARRATIVE: CASE EVENT DATE: 20200301
